FAERS Safety Report 23013952 (Version 1)
Quarter: 2023Q4

REPORT INFORMATION
  Report Type: Spontaneous
  Country: US (occurrence: US)
  Receive Date: 20231001
  Receipt Date: 20231001
  Transmission Date: 20240110
  Serious: No
  Sender: FDA-Public Use
  Company Number: US-drreddys-SPO/USA/23/0175416

PATIENT
  Age: 28 Year
  Sex: Female

DRUGS (1)
  1. NICOTINE [Suspect]
     Active Substance: NICOTINE
     Indication: Tobacco user
     Route: 062
     Dates: start: 20230813, end: 20230822

REACTIONS (5)
  - Product dose omission issue [Unknown]
  - Product adhesion issue [Unknown]
  - Underdose [Unknown]
  - Drug ineffective [Unknown]
  - Product quality issue [Unknown]
